FAERS Safety Report 25710098 (Version 2)
Quarter: 2025Q3

REPORT INFORMATION
  Report Type: Spontaneous
  Country: TR (occurrence: TR)
  Receive Date: 20250821
  Receipt Date: 20250903
  Transmission Date: 20251020
  Serious: Yes (Other)
  Sender: RANBAXY
  Company Number: TR-SUN PHARMACEUTICAL INDUSTRIES LTD-2025R1-523690

PATIENT
  Age: 78 Year
  Sex: Male

DRUGS (6)
  1. DONEPEZIL [Suspect]
     Active Substance: DONEPEZIL
     Indication: Dementia
     Route: 065
  2. DONEPEZIL [Suspect]
     Active Substance: DONEPEZIL
     Indication: Hallucination
  3. TRIFLUOPERAZINE [Suspect]
     Active Substance: TRIFLUOPERAZINE HYDROCHLORIDE
     Indication: Restlessness
     Route: 065
  4. TRIFLUOPERAZINE [Suspect]
     Active Substance: TRIFLUOPERAZINE HYDROCHLORIDE
     Indication: Nausea
  5. MEDAZEPAM [Suspect]
     Active Substance: MEDAZEPAM
     Indication: Insomnia
     Route: 065
  6. MEDAZEPAM [Suspect]
     Active Substance: MEDAZEPAM
     Indication: Restlessness

REACTIONS (1)
  - Disease progression [Unknown]
